FAERS Safety Report 18336428 (Version 2)
Quarter: 2020Q4

REPORT INFORMATION
  Report Type: Spontaneous
  Country: US (occurrence: US)
  Receive Date: 20201001
  Receipt Date: 20201118
  Transmission Date: 20210113
  Serious: Yes (Other)
  Sender: FDA-Public Use
  Company Number: US-PFIZER INC-2020373385

PATIENT
  Age: 61 Year
  Sex: Female
  Weight: 97.52 kg

DRUGS (2)
  1. LETROZOLE. [Suspect]
     Active Substance: LETROZOLE
     Dosage: 2.5 MG, DAILY
     Route: 048
     Dates: start: 2015
  2. IBRANCE [Suspect]
     Active Substance: PALBOCICLIB
     Indication: BREAST CANCER METASTATIC
     Dosage: 100 MG, CYCLIC ( 21 DAYS BY MOUTH WEEK OFF RESTART CYCLE)
     Dates: start: 2015, end: 20200924

REACTIONS (2)
  - Neuropathy peripheral [Unknown]
  - Neoplasm progression [Unknown]
